FAERS Safety Report 6093583-X (Version None)
Quarter: 2009Q1

REPORT INFORMATION
  Report Type: 
  Country: None (occurrence: None)
  Receive Date: 20090226
  Receipt Date: 20090216
  Transmission Date: 20090719
  Serious: Yes (Other)
  Sender: FDA-Public Use
  Company Number: PL-PFIZER INC-2009171635

PATIENT

DRUGS (1)
  1. INSPRA [Suspect]
     Indication: CARDIAC FAILURE

REACTIONS (1)
  - VENOUS THROMBOSIS [None]
